FAERS Safety Report 9193141 (Version 1)
Quarter: 2013Q1

REPORT INFORMATION
  Report Type: Spontaneous
  Country: US (occurrence: None)
  Receive Date: 20120703
  Receipt Date: 20120703
  Transmission Date: 20140127
  Serious: No
  Sender: FDA-Public Use
  Company Number: PHEH2012US005027

PATIENT
  Age: 44 Year
  Sex: Female

DRUGS (6)
  1. GILENYA (FTY) CAPSULE [Suspect]
     Indication: MULTIPLE SCLEROSIS
     Route: 048
  2. AMBIEN (ZOLPIDEM TARTRATE) [Concomitant]
  3. MACROBID (NITROFURANTOIN) [Concomitant]
  4. TOPAMAX (TOPIRAMATE) [Concomitant]
  5. TREXIMET (NAPROXEN SODIUM, SUMATRIPTAN SUCCINATE) [Concomitant]
  6. PYRIDIUM (PHENAZOPYRIDINE HYDROCHLORIDE) [Concomitant]

REACTIONS (3)
  - Fatigue [None]
  - Nasopharyngitis [None]
  - Urinary tract infection [None]
